FAERS Safety Report 4832763-5 (Version None)
Quarter: 2005Q4

REPORT INFORMATION
  Report Type: 
  Country: None (occurrence: None)
  Receive Date: 20051117
  Receipt Date: 20051109
  Transmission Date: 20060501
  Serious: Yes (Hospitalization, Other)
  Sender: FDA-Public Use
  Company Number: EWC051046881

PATIENT
  Age: 25 Year
  Sex: Male

DRUGS (1)
  1. OLANZAPINE [Suspect]
     Dosage: 20 MG/1 DAY
     Dates: start: 20050315, end: 20050801

REACTIONS (9)
  - ATROPHY [None]
  - BLOOD PRESSURE INCREASED [None]
  - BLOOD SODIUM DECREASED [None]
  - FALL [None]
  - LOSS OF CONSCIOUSNESS [None]
  - MANIA [None]
  - POLLAKIURIA [None]
  - POLYDIPSIA [None]
  - SCHIZOPHRENIA [None]
